FAERS Safety Report 23325348 (Version 1)
Quarter: 2023Q4

REPORT INFORMATION
  Report Type: Spontaneous
  Country: KR (occurrence: KR)
  Receive Date: 20231221
  Receipt Date: 20231221
  Transmission Date: 20240109
  Serious: Yes (Other)
  Sender: FDA-Public Use
  Company Number: KR-STRIDES ARCOLAB LIMITED-2023SP018850

PATIENT
  Age: 10 Year
  Sex: Male

DRUGS (2)
  1. LETROZOLE [Suspect]
     Active Substance: LETROZOLE
     Indication: Short stature
     Dosage: 2.5 MILLIGRAM, QD
     Route: 065
  2. SOMATROPIN [Concomitant]
     Active Substance: SOMATROPIN
     Indication: Precocious puberty
     Dosage: UNK
     Route: 065

REACTIONS (4)
  - Psychomotor hyperactivity [Unknown]
  - Aggression [Unknown]
  - Condition aggravated [Unknown]
  - Off label use [Unknown]
